FAERS Safety Report 14194574 (Version 2)
Quarter: 2017Q4

REPORT INFORMATION
  Report Type: Spontaneous
  Country: CN (occurrence: CN)
  Receive Date: 20171116
  Receipt Date: 20171121
  Transmission Date: 20180321
  Serious: Yes (Other)
  Sender: FDA-Public Use
  Company Number: CN-ABBVIE-17P-035-2165437-00

PATIENT
  Age: 63 Year
  Sex: Female

DRUGS (3)
  1. VALPROATE SODIUM. [Suspect]
     Active Substance: VALPROATE SODIUM
     Indication: STATUS EPILEPTICUS
     Route: 050
     Dates: start: 20170815, end: 20170817
  2. VALPROATE SODIUM. [Suspect]
     Active Substance: VALPROATE SODIUM
     Indication: STATUS EPILEPTICUS
     Dosage: TABLET, EXTENDED RELEASE
     Route: 048
     Dates: start: 20170818, end: 20170829
  3. LEVETIRACETAM. [Concomitant]
     Active Substance: LEVETIRACETAM
     Indication: PRODUCT USED FOR UNKNOWN INDICATION
     Dates: start: 20170815, end: 20170829

REACTIONS (1)
  - Platelet count decreased [Recovering/Resolving]

NARRATIVE: CASE EVENT DATE: 20170818
